FAERS Safety Report 6925608-0 (Version None)
Quarter: 2010Q3

REPORT INFORMATION
  Report Type: 
  Country: None (occurrence: None)
  Receive Date: 20100813
  Receipt Date: 20100813
  Transmission Date: 20110219
  Serious: Yes (Hospitalization)
  Sender: FDA-Public Use
  Company Number: None

PATIENT
  Sex: Female
  Weight: 69.3 kg

DRUGS (3)
  1. DOXORUBICIN HYDROCHLORIDE [Suspect]
     Dosage: 428 MG
     Dates: end: 20100715
  2. TAXOL [Suspect]
     Dosage: 1704 MG
     Dates: end: 20100520
  3. CYCLOPHOSPHAMIDE [Suspect]
     Dosage: 4296 MG
     Dates: end: 20100715

REACTIONS (15)
  - ASPARTATE AMINOTRANSFERASE INCREASED [None]
  - ATRIAL FIBRILLATION [None]
  - BODY TEMPERATURE DECREASED [None]
  - CARBON DIOXIDE DECREASED [None]
  - CHILLS [None]
  - FATIGUE [None]
  - HAEMATOCRIT DECREASED [None]
  - HAEMOGLOBIN DECREASED [None]
  - HEADACHE [None]
  - LETHARGY [None]
  - MYALGIA [None]
  - NAUSEA [None]
  - NEUTROPHIL COUNT DECREASED [None]
  - PLATELET COUNT DECREASED [None]
  - PYREXIA [None]
